FAERS Safety Report 23814348 (Version 1)
Quarter: 2024Q2

REPORT INFORMATION
  Report Type: Spontaneous
  Country: US (occurrence: US)
  Receive Date: 20240503
  Receipt Date: 20240503
  Transmission Date: 20240716
  Serious: Yes (Hospitalization, Other)
  Sender: FDA-Public Use
  Company Number: US-MARINUS PHARMACEUTICALS, INC.-MAR2024000073

PATIENT

DRUGS (1)
  1. ZTALMY [Suspect]
     Active Substance: GANAXOLONE
     Indication: CDKL5 deficiency disorder
     Dosage: 6.5 MILLILITER, TID
     Route: 048
     Dates: start: 202302

REACTIONS (3)
  - Change in seizure presentation [Unknown]
  - Food interaction [Unknown]
  - Hypercalcaemia [Unknown]
